FAERS Safety Report 5048478-7 (Version None)
Quarter: 2006Q3

REPORT INFORMATION
  Report Type: 
  Country: None (occurrence: None)
  Receive Date: 20060705
  Receipt Date: 20060628
  Transmission Date: 20061208
  Serious: Yes (Life-Threatening, Hospitalization)
  Sender: FDA-Public Use
  Company Number: 200610779BNE

PATIENT
  Age: 69 Year
  Sex: Female

DRUGS (2)
  1. SORAFENIB [Suspect]
     Indication: METASTATIC MALIGNANT MELANOMA
     Dosage: 400 MG, BID, ORAL
     Route: 048
     Dates: start: 20060511, end: 20060625
  2. DACARBAZINE [Suspect]
     Indication: METASTATIC MALIGNANT MELANOMA
     Dosage: INTRAVENOUS
     Route: 042
     Dates: start: 20060609

REACTIONS (2)
  - NEUTROPENIC SEPSIS [None]
  - PLATELET COUNT DECREASED [None]
